FAERS Safety Report 12328654 (Version 1)
Quarter: 2016Q2

REPORT INFORMATION
  Report Type: Spontaneous
  Country: US (occurrence: US)
  Receive Date: 20160503
  Receipt Date: 20160503
  Transmission Date: 20160815
  Serious: No
  Sender: FDA-Public Use
  Company Number: US-BEH-2015049939

PATIENT
  Sex: Female
  Weight: 81.9 kg

DRUGS (11)
  1. HIZENTRA [Suspect]
     Active Substance: HUMAN IMMUNOGLOBULIN G
     Indication: IMMUNODEFICIENCY COMMON VARIABLE
     Dosage: 10 G 50 ML VIAL
     Route: 058
  2. MACRODANTIN [Concomitant]
     Active Substance: NITROFURANTOIN
  3. DEXAMETHASONE. [Concomitant]
     Active Substance: DEXAMETHASONE
  4. IBUPROFEN. [Concomitant]
     Active Substance: IBUPROFEN
  5. HIZENTRA [Suspect]
     Active Substance: HUMAN IMMUNOGLOBULIN G
     Dates: start: 2010
  6. MULTIPLE VITAMINS [Concomitant]
     Active Substance: VITAMINS
  7. ALPRAZOLAM. [Concomitant]
     Active Substance: ALPRAZOLAM
  8. EPIPEN [Concomitant]
     Active Substance: EPINEPHRINE
  9. DIPHENHYDRAMINE. [Concomitant]
     Active Substance: DIPHENHYDRAMINE
  10. ACETAMINOPHEN. [Concomitant]
     Active Substance: ACETAMINOPHEN
  11. AMOXICILLIN. [Concomitant]
     Active Substance: AMOXICILLIN

REACTIONS (1)
  - Nausea [Unknown]
